FAERS Safety Report 5824455-0 (Version None)
Quarter: 2008Q3

REPORT INFORMATION
  Report Type: 
  Country: None (occurrence: None)
  Receive Date: 20080728
  Receipt Date: 20080718
  Transmission Date: 20090109
  Serious: Yes (Other)
  Sender: FDA-Public Use
  Company Number: B0529670A

PATIENT
  Sex: Female

DRUGS (2)
  1. ZOVIRAX [Suspect]
     Dosage: 400MG TWICE PER DAY
     Route: 065
     Dates: start: 20080501
  2. NORGESTIMATE AND ETHINYL ESTRADIOL [Suspect]
     Indication: CONTRACEPTION
     Route: 065
     Dates: start: 20050101

REACTIONS (2)
  - DRUG INTERACTION [None]
  - DYSFUNCTIONAL UTERINE BLEEDING [None]
